FAERS Safety Report 18349983 (Version 1)
Quarter: 2020Q4

REPORT INFORMATION
  Report Type: Spontaneous
  Country: US (occurrence: US)
  Receive Date: 20201006
  Receipt Date: 20201006
  Transmission Date: 20210114
  Serious: Yes (Other)
  Sender: FDA-Public Use
  Company Number: US-LUPIN PHARMACEUTICALS INC.-2020-04986

PATIENT
  Age: 32 Year
  Sex: Female
  Weight: 58.96 kg

DRUGS (3)
  1. VIMPAT [Concomitant]
     Active Substance: LACOSAMIDE
     Indication: PRODUCT USED FOR UNKNOWN INDICATION
     Dosage: UNK
     Route: 065
  2. CLOBAZAM TABLETS, 10 MG [Suspect]
     Active Substance: CLOBAZAM
     Dosage: 30 MILLIGRAM, QD
     Route: 048
     Dates: start: 202007
  3. CLOBAZAM TABLETS, 10 MG [Suspect]
     Active Substance: CLOBAZAM
     Indication: SEIZURE
     Dosage: 25 MILLIGRAM, QD (2 AND HALF TABLETS A DAY)
     Route: 048
     Dates: start: 202007

REACTIONS (4)
  - Product substitution issue [Unknown]
  - Seizure [Recovered/Resolved]
  - Product quality issue [Unknown]
  - Expired product administered [Unknown]

NARRATIVE: CASE EVENT DATE: 202007
